FAERS Safety Report 18820468 (Version 1)
Quarter: 2021Q1

REPORT INFORMATION
  Report Type: Spontaneous
  Country: US (occurrence: US)
  Receive Date: 20210202
  Receipt Date: 20210202
  Transmission Date: 20210419
  Serious: Yes (Hospitalization)
  Sender: FDA-Public Use
  Company Number: US-ROCHE-2758668

PATIENT
  Sex: Female

DRUGS (19)
  1. ALBUTEROL SULFATE. [Concomitant]
     Active Substance: ALBUTEROL SULFATE
  2. CLARITIN [Concomitant]
     Active Substance: LORATADINE
  3. ELIQUIS [Concomitant]
     Active Substance: APIXABAN
  4. ZOLOFT [Concomitant]
     Active Substance: SERTRALINE HYDROCHLORIDE
  5. ZYRTEC [Concomitant]
     Active Substance: CETIRIZINE HYDROCHLORIDE
  6. XOLAIR [Suspect]
     Active Substance: OMALIZUMAB
     Indication: STATUS ASTHMATICUS
     Route: 058
  7. PROVENTIL HFA [Concomitant]
     Active Substance: ALBUTEROL SULFATE
  8. CHLORTHALIDON [Concomitant]
     Active Substance: CHLORTHALIDONE
  9. FLONASE [Concomitant]
     Active Substance: FLUTICASONE PROPIONATE
     Dosage: 50 MCG/AC
  10. XOLAIR [Suspect]
     Active Substance: OMALIZUMAB
  11. XOLAIR [Suspect]
     Active Substance: OMALIZUMAB
  12. PULMICORT FLEXHALER [Concomitant]
     Active Substance: BUDESONIDE
     Dosage: 90 MCG/AC
  13. TESSALON [Concomitant]
     Active Substance: BENZONATATE
  14. SINGULAIR [Concomitant]
     Active Substance: MONTELUKAST SODIUM
  15. AMITRIPTYLINE [Concomitant]
     Active Substance: AMITRIPTYLINE
  16. LEVOTHYROXINE. [Concomitant]
     Active Substance: LEVOTHYROXINE
  17. SYMBICORT [Concomitant]
     Active Substance: BUDESONIDE\FORMOTEROL FUMARATE DIHYDRATE
     Dosage: AER 160? 4.5 MCG
  18. DITROPAN XL [Concomitant]
     Active Substance: OXYBUTYNIN CHLORIDE
  19. IMITREX [Concomitant]
     Active Substance: SUMATRIPTAN SUCCINATE

REACTIONS (3)
  - Intentional product use issue [Unknown]
  - Off label use [Unknown]
  - COVID-19 [Unknown]
